FAERS Safety Report 6663208-0 (Version None)
Quarter: 2010Q1

REPORT INFORMATION
  Report Type: 
  Country: None (occurrence: None)
  Receive Date: 20100330
  Receipt Date: 20100330
  Transmission Date: 20100710
  Serious: Yes (Hospitalization)
  Sender: FDA-Public Use
  Company Number: None

PATIENT
  Sex: Male
  Weight: 18 kg

DRUGS (1)
  1. TYLENOL COUGH AND COLD DIPHENYDRAMINE 6.25MG5ML NOVARTIS [Suspect]
     Indication: ACCIDENTAL OVERDOSE

REACTIONS (6)
  - ACCIDENTAL DRUG INTAKE BY CHILD [None]
  - FAILURE OF CHILD RESISTANT MECHANISM FOR PHARMACEUTICAL PRODUCT [None]
  - INCORRECT DOSE ADMINISTERED [None]
  - MEDICATION ERROR [None]
  - PSYCHOMOTOR HYPERACTIVITY [None]
  - SOMNOLENCE [None]
